FAERS Safety Report 6048189-5 (Version None)
Quarter: 2009Q1

REPORT INFORMATION
  Report Type: 
  Country: None (occurrence: None)
  Receive Date: 20090123
  Receipt Date: 20090115
  Transmission Date: 20090719
  Serious: Yes (Death, Life-Threatening, Hospitalization)
  Sender: FDA-Public Use
  Company Number: US-AVENTIS-200821877GDDC

PATIENT
  Age: 68 Year
  Sex: Male
  Weight: 111 kg

DRUGS (20)
  1. TAXOTERE [Suspect]
     Route: 042
     Dates: start: 20081203, end: 20081203
  2. ENZASTAURIN [Suspect]
     Route: 048
     Dates: start: 20081202, end: 20081202
  3. ENZASTAURIN [Suspect]
     Route: 048
     Dates: start: 20081203, end: 20081206
  4. PREDNISONE [Suspect]
     Route: 048
     Dates: start: 20081203, end: 20081206
  5. ENOXAPARIN [Concomitant]
     Dosage: DOSE: UNK
     Dates: start: 20081203
  6. PROCHLORPERAZINE [Concomitant]
     Dosage: DOSE: UNK
     Dates: start: 20081126
  7. PERCOCET [Concomitant]
     Dosage: DOSE: UNK
     Dates: start: 20081117
  8. AMLODIPINE BESYLATE W/BENAZEPRIL [Concomitant]
     Dosage: DOSE: UNK
     Dates: start: 20081110
  9. AMBIEN [Concomitant]
     Dosage: DOSE: UNK
     Dates: start: 20081110
  10. FLOMAX [Concomitant]
     Dosage: DOSE: UNK
     Dates: start: 20081110
  11. OMEPRAZOLE [Concomitant]
     Dosage: DOSE: UNK
     Dates: start: 20081103
  12. ALPRAZOLAM [Concomitant]
     Dosage: DOSE: UNK
     Dates: start: 20081008
  13. TOPROL-XL [Concomitant]
     Dosage: DOSE: UNK
     Dates: start: 20080912
  14. FLUTICASONE PROPIONATE [Concomitant]
     Dosage: DOSE: UNK
     Dates: start: 20080902
  15. FISH OIL [Concomitant]
     Dosage: DOSE: UNK
     Dates: start: 20080506
  16. MULTI-VITAMINS [Concomitant]
     Dosage: DOSE: UNK
     Dates: start: 20070228
  17. GLUCOSAMINE [Concomitant]
     Dosage: DOSE: UNK
     Dates: start: 20080228
  18. CHONDROITIN [Concomitant]
     Dosage: DOSE: UNK
     Dates: start: 20080228
  19. VITAMIN E [Concomitant]
     Dosage: DOSE: UNK
     Dates: start: 20070228
  20. DEXAMETHASONE [Concomitant]
     Dosage: DOSE: UNK

REACTIONS (17)
  - ACUTE MYOCARDIAL INFARCTION [None]
  - ACUTE RESPIRATORY DISTRESS SYNDROME [None]
  - CARDIAC ARREST [None]
  - DIARRHOEA [None]
  - HAEMODYNAMIC INSTABILITY [None]
  - HERPES VIRUS INFECTION [None]
  - INSOMNIA [None]
  - MYOCARDIAL INFARCTION [None]
  - NEUTROPENIA [None]
  - PERIPHERAL SENSORY NEUROPATHY [None]
  - PLATELET COUNT DECREASED [None]
  - PNEUMONIA [None]
  - RESPIRATORY ACIDOSIS [None]
  - SEPSIS [None]
  - SINUS TACHYCARDIA [None]
  - SUPRAVENTRICULAR TACHYCARDIA [None]
  - VENTRICULAR FIBRILLATION [None]
